FAERS Safety Report 6501291-3 (Version None)
Quarter: 2009Q4

REPORT INFORMATION
  Report Type: 
  Country: None (occurrence: None)
  Receive Date: 20091127
  Receipt Date: 20090929
  Transmission Date: 20100525
  Serious: No
  Sender: FDA-Public Use
  Company Number: 001886

PATIENT
  Sex: Female
  Weight: 53.5 kg

DRUGS (9)
  1. LACOSAMIDE [Suspect]
     Indication: CONVULSION
     Dosage: 50 MG BID ORAL, 100 MG TID ORAL, 200 MG QD ORAL
     Route: 048
     Dates: start: 20090601, end: 20090628
  2. LACOSAMIDE [Suspect]
     Indication: CONVULSION
     Dosage: 50 MG BID ORAL, 100 MG TID ORAL, 200 MG QD ORAL
     Route: 048
     Dates: start: 20090928
  3. LACOSAMIDE [Suspect]
     Indication: CONVULSION
     Dosage: 50 MG BID ORAL, 100 MG TID ORAL, 200 MG QD ORAL
     Route: 048
     Dates: start: 20090928
  4. KEPPRA [Suspect]
     Indication: CONVULSION
     Dosage: ORAL, ORAL
     Route: 048
     Dates: start: 20090601
  5. TRILEPTAL [Concomitant]
  6. QUERCETIN [Concomitant]
  7. MULTI-VITAMINS [Concomitant]
  8. GLUCOSE W/ELECTROLYTES [Concomitant]
  9. TAURINE [Concomitant]

REACTIONS (7)
  - AMNESIA [None]
  - CONVULSION [None]
  - DYSGEUSIA [None]
  - FATIGUE [None]
  - HEADACHE [None]
  - SLEEP DISORDER [None]
  - URINARY INCONTINENCE [None]
